FAERS Safety Report 22252875 (Version 2)
Quarter: 2023Q2

REPORT INFORMATION
  Report Type: Spontaneous
  Country: DE (occurrence: DE)
  Receive Date: 20230426
  Receipt Date: 20230626
  Transmission Date: 20230721
  Serious: Yes (Death, Hospitalization)
  Sender: FDA-Public Use
  Company Number: DE-DCGMA-23200818

PATIENT
  Sex: Male
  Weight: 70 kg

DRUGS (12)
  1. METFORMIN [Suspect]
     Active Substance: METFORMIN HYDROCHLORIDE
     Indication: Diabetes mellitus
     Route: 065
  2. NEBIVOLOL [Concomitant]
     Active Substance: NEBIVOLOL
     Indication: Cardiac failure
  3. NEBIVOLOL [Concomitant]
     Active Substance: NEBIVOLOL
     Dosage: 10 MILLIGRAM DAILY; 1-0-1, FOR YEARS
     Route: 048
  4. IRBESARTAN [Concomitant]
     Active Substance: IRBESARTAN
     Indication: Cardiac failure
  5. IRBESARTAN [Concomitant]
     Active Substance: IRBESARTAN
     Dosage: 300 MILLIGRAM DAILY; 1-0-1, FOR YEARS
  6. SIMVASTATIN [Concomitant]
     Active Substance: SIMVASTATIN
     Indication: Cardiac failure
     Dosage: 0-0-1, FOR YEARS
     Route: 048
  7. AMLODIPINE BESYLATE [Concomitant]
     Active Substance: AMLODIPINE BESYLATE
     Indication: Hypertension
     Dosage: 0-1-0, FOR YEARS
  8. TORSEMIDE [Concomitant]
     Active Substance: TORSEMIDE
     Indication: Cardiac failure
  9. TORSEMIDE [Concomitant]
     Active Substance: TORSEMIDE
     Dosage: 25 MILLIGRAM DAILY; 1-1/2-1, FOR YEARS
     Route: 048
  10. SPIRONOLACTONE [Concomitant]
     Active Substance: SPIRONOLACTONE
     Indication: Cardiac failure
     Dosage: 1-0-0, FOR YEARS
     Route: 048
  11. ELIQUIS [Concomitant]
     Active Substance: APIXABAN
     Indication: Atrial fibrillation
  12. ELIQUIS [Concomitant]
     Active Substance: APIXABAN
     Dosage: 1-0-1, FOR YEARS
     Route: 048

REACTIONS (4)
  - Sepsis [Fatal]
  - Acute kidney injury [Fatal]
  - Lactic acidosis [Fatal]
  - Toxicity to various agents [Fatal]

NARRATIVE: CASE EVENT DATE: 20230306
